FAERS Safety Report 5102390-3 (Version None)
Quarter: 2006Q3

REPORT INFORMATION
  Report Type: 
  Country: None (occurrence: None)
  Receive Date: 20060912
  Receipt Date: 20060721
  Transmission Date: 20061208
  Serious: Yes (Death)
  Sender: FDA-Public Use
  Company Number: US-AVENTIS-200616158US

PATIENT
  Sex: Female
  Weight: 95.45 kg

DRUGS (5)
  1. KETEK [Suspect]
     Indication: ACUTE SINUSITIS
     Route: 048
     Dates: start: 20060626, end: 20060101
  2. NEURONTIN [Concomitant]
     Dates: start: 20050101
  3. SYNTHROID [Concomitant]
     Dates: start: 20050101
  4. PROTONIX [Concomitant]
  5. CIPRO [Concomitant]
     Dosage: DOSE: UNK
     Dates: start: 20060610

REACTIONS (3)
  - DEEP VEIN THROMBOSIS [None]
  - PULMONARY EMBOLISM [None]
  - SUDDEN DEATH [None]
